FAERS Safety Report 21395185 (Version 3)
Quarter: 2022Q4

REPORT INFORMATION
  Report Type: Report from Study
  Country: JP (occurrence: JP)
  Receive Date: 20220930
  Receipt Date: 20221016
  Transmission Date: 20230113
  Serious: Yes (Hospitalization, Other)
  Sender: FDA-Public Use
  Company Number: JP-TAKEDA-2022TJP074561

PATIENT
  Age: 73 Year
  Sex: Female
  Weight: 50.1 kg

DRUGS (3)
  1. BRIGATINIB [Suspect]
     Active Substance: BRIGATINIB
     Indication: Non-small cell lung cancer stage IV
     Dosage: 90 MILLIGRAM
     Route: 065
     Dates: start: 20220820, end: 20220826
  2. BRIGATINIB [Suspect]
     Active Substance: BRIGATINIB
     Dosage: 180 MILLIGRAM, QD
     Route: 065
     Dates: start: 20220827, end: 20220912
  3. BRIGATINIB [Suspect]
     Active Substance: BRIGATINIB
     Dosage: 180 MILLIGRAM, QD
     Route: 065
     Dates: start: 20220917, end: 20220925

REACTIONS (10)
  - Pulmonary toxicity [Not Recovered/Not Resolved]
  - Non-small cell lung cancer [Unknown]
  - Cholangitis [Unknown]
  - Stomatitis [Recovered/Resolved]
  - Drug-induced liver injury [Recovering/Resolving]
  - Treatment noncompliance [Unknown]
  - Lipase increased [Not Recovered/Not Resolved]
  - Hypertension [Unknown]
  - Blood creatine phosphokinase increased [Unknown]
  - Amylase increased [Unknown]

NARRATIVE: CASE EVENT DATE: 20220902
